FAERS Safety Report 15200779 (Version 1)
Quarter: 2018Q3

REPORT INFORMATION
  Report Type: Spontaneous
  Country: FR (occurrence: FR)
  Receive Date: 20180726
  Receipt Date: 20180726
  Transmission Date: 20181010
  Serious: Yes (Hospitalization)
  Sender: FDA-Public Use
  Company Number: FR-TEVA-2018-FR-929311

PATIENT
  Age: 32 Year
  Sex: Female

DRUGS (1)
  1. AMOXICILLINE [Suspect]
     Active Substance: AMOXICILLIN
     Indication: LUNG DISORDER
     Route: 048
     Dates: start: 20160113, end: 20160115

REACTIONS (2)
  - Hypersensitivity [Unknown]
  - Rash pruritic [Unknown]

NARRATIVE: CASE EVENT DATE: 20160116
